FAERS Safety Report 26094128 (Version 1)
Quarter: 2025Q4

REPORT INFORMATION
  Report Type: Spontaneous
  Country: EU (occurrence: EU)
  Receive Date: 20251126
  Receipt Date: 20251126
  Transmission Date: 20260117
  Serious: Yes (Other)
  Sender: ASCEND THERAPEUTICS US, LLC
  Company Number: EU-Ascend Therapeutics US, LLC-2189368

PATIENT
  Age: 76 Year
  Sex: Male

DRUGS (11)
  1. ANDROGEL [Suspect]
     Active Substance: TESTOSTERONE
     Indication: Hypopituitarism
     Dates: start: 20241221, end: 20241222
  2. TESTOSTERONE [Suspect]
     Active Substance: TESTOSTERONE
     Dates: start: 20241221, end: 20241222
  3. TESTOSTERONE [Concomitant]
     Active Substance: TESTOSTERONE
     Dates: start: 202503
  4. TESTOSTERONE [Concomitant]
     Active Substance: TESTOSTERONE
     Dates: end: 202412
  5. UVEDOSE 50,000 IU, oral solution in ampoules?Active Substance [Concomitant]
  6. ALFUZOSINE (HYDROCHLORIDE) [Concomitant]
  7. AMLODIPINE BESYLATE [Concomitant]
     Active Substance: AMLODIPINE BESYLATE
  8. CELIPROLOL (HYDROCHLORIDE) [Concomitant]
  9. PRAVASTATIN SODIUM [Concomitant]
     Active Substance: PRAVASTATIN SODIUM
  10. LEVOTHYROXINE [Concomitant]
     Active Substance: LEVOTHYROXINE
  11. HYDROCORTISONE [Concomitant]
     Active Substance: HYDROCORTISONE

REACTIONS (2)
  - Arthralgia [Recovered/Resolved]
  - Headache [Recovered/Resolved]

NARRATIVE: CASE EVENT DATE: 20241231
